FAERS Safety Report 9095397 (Version 1)
Quarter: 2013Q1

REPORT INFORMATION
  Report Type: Spontaneous
  Country: JP (occurrence: JP)
  Receive Date: 20130219
  Receipt Date: 20130219
  Transmission Date: 20140127
  Serious: Yes (Hospitalization)
  Sender: FDA-Public Use
  Company Number: JP-B.I. PHARMACEUTICALS,INC./RIDGEFIELD-2013-BI-03748NB

PATIENT
  Age: 85 Year
  Sex: Female

DRUGS (3)
  1. PRAZAXA [Suspect]
     Dosage: 220 MG
     Route: 048
  2. HALFDIGOXIN [Suspect]
     Route: 048
  3. LASIX [Concomitant]
     Route: 065

REACTIONS (3)
  - Asthenia [Unknown]
  - Cardioactive drug level increased [Unknown]
  - Drug interaction [Unknown]
